FAERS Safety Report 13069677 (Version 1)
Quarter: 2016Q4

REPORT INFORMATION
  Report Type: Report from Study
  Country: DE (occurrence: DE)
  Receive Date: 20161228
  Receipt Date: 20161228
  Transmission Date: 20170207
  Serious: Yes (Hospitalization)
  Sender: FDA-Public Use
  Company Number: DE-PFIZER INC-2015156213

PATIENT
  Age: 15 Year
  Sex: Female
  Weight: 32 kg

DRUGS (10)
  1. METHOTREXATE SODIUM. [Suspect]
     Active Substance: METHOTREXATE SODIUM
     Indication: JUVENILE IDIOPATHIC ARTHRITIS
     Dosage: 7.5 MG, WEEKLY
     Dates: start: 20121114, end: 20150513
  2. LASIX [Concomitant]
     Active Substance: FUROSEMIDE
     Dosage: 7 MG, 2X/DAY
     Dates: start: 201206
  3. LANITOP [Concomitant]
     Active Substance: METILDIGOXIN
     Dosage: 4 GTT, 2X/DAY
     Dates: start: 201206
  4. ALDACTONE [Concomitant]
     Active Substance: SPIRONOLACTONE
     Dosage: 25 MG, DAILY
     Dates: start: 201206
  5. ALDACTONE [Concomitant]
     Active Substance: SPIRONOLACTONE
     Indication: CARDIAC FAILURE
     Dosage: UNK
     Route: 048
     Dates: start: 19990507
  6. ETANERCEPT [Suspect]
     Active Substance: ETANERCEPT
     Indication: JUVENILE IDIOPATHIC ARTHRITIS
     Dosage: 25 MG, EVERY 6 DAYS
     Dates: start: 20120628, end: 20150513
  7. LASIX [Concomitant]
     Active Substance: FUROSEMIDE
     Indication: CARDIAC FAILURE
     Dosage: 25 MG, DAILY
     Route: 048
     Dates: start: 19990507
  8. MARCUMAR [Concomitant]
     Active Substance: PHENPROCOUMON
     Dosage: UNK, 1X/DAY
     Dates: start: 201206
  9. LANITOP [Concomitant]
     Active Substance: METILDIGOXIN
     Indication: CARDIAC FAILURE
     Dosage: UNK
     Route: 048
     Dates: start: 19990507
  10. MARCUMAR [Concomitant]
     Active Substance: PHENPROCOUMON
     Indication: CARDIAC FAILURE
     Dosage: UNK
     Route: 048
     Dates: start: 19990507

REACTIONS (2)
  - Lymphoproliferative disorder [Recovered/Resolved]
  - Febrile infection [Recovered/Resolved]

NARRATIVE: CASE EVENT DATE: 20150115
